FAERS Safety Report 7054988-3 (Version None)
Quarter: 2010Q4

REPORT INFORMATION
  Report Type: 
  Country: None (occurrence: None)
  Receive Date: 20101021
  Receipt Date: 20101012
  Transmission Date: 20110411
  Serious: Yes (Hospitalization, Other)
  Sender: FDA-Public Use
  Company Number: FR-JNJFOC-20101004033

PATIENT
  Sex: Female

DRUGS (9)
  1. TOPIRAMATE [Suspect]
     Indication: OPTIC NEUROPATHY
     Route: 048
  2. NEURONTIN [Suspect]
     Indication: OPTIC NEUROPATHY
     Route: 048
  3. TEGRETOL [Suspect]
     Indication: PRODUCT USED FOR UNKNOWN INDICATION
     Route: 048
     Dates: start: 19960101, end: 20000101
  4. LAMICTAL [Suspect]
     Indication: PRODUCT USED FOR UNKNOWN INDICATION
     Route: 048
     Dates: start: 19960101, end: 19990101
  5. URBANYL [Suspect]
     Indication: PRODUCT USED FOR UNKNOWN INDICATION
     Route: 048
     Dates: start: 20000101, end: 20090101
  6. IMMUNE GLOBULIN INTRAVENOUS (HUMAN) [Suspect]
     Indication: PRODUCT USED FOR UNKNOWN INDICATION
     Dosage: 10 G/200 ML
     Route: 042
  7. RIVOTRIL [Suspect]
     Indication: PRODUCT USED FOR UNKNOWN INDICATION
     Route: 048
     Dates: start: 20090901, end: 20091101
  8. VIMPAT [Suspect]
     Indication: OPTIC NEUROPATHY
     Route: 048
     Dates: start: 20091101, end: 20100528
  9. VIMPAT [Suspect]
     Route: 048
     Dates: start: 20091101, end: 20100528

REACTIONS (2)
  - HEMIANOPIA HOMONYMOUS [None]
  - OPTIC NEUROPATHY [None]
